FAERS Safety Report 7223051-0 (Version None)
Quarter: 2011Q1

REPORT INFORMATION
  Report Type: 
  Country: None (occurrence: None)
  Receive Date: 20110112
  Receipt Date: 20110105
  Transmission Date: 20110831
  Serious: Yes (Death)
  Sender: FDA-Public Use
  Company Number: US-MERCK-1012USA03454

PATIENT
  Age: 43 Year
  Sex: Male

DRUGS (4)
  1. ZITHROMAX [Concomitant]
     Route: 065
  2. ISENTRESS [Suspect]
     Indication: HIV INFECTION
     Route: 048
     Dates: start: 20100401
  3. TRUVADA [Concomitant]
     Route: 065
  4. BACTRIM DS [Concomitant]
     Route: 065

REACTIONS (3)
  - B-CELL LYMPHOMA [None]
  - RESPIRATORY FAILURE [None]
  - FEBRILE NEUTROPENIA [None]
